FAERS Safety Report 4607957-4 (Version None)
Quarter: 2005Q1

REPORT INFORMATION
  Report Type: 
  Country: None (occurrence: None)
  Receive Date: 20050228
  Receipt Date: 20041216
  Transmission Date: 20050727
  Serious: No
  Sender: FDA-Public Use
  Company Number: FABR-10920

PATIENT
  Age: 58 Year
  Sex: Female

DRUGS (3)
  1. FABRAZYME [Suspect]
     Indication: FABRY'S DISEASE
     Dosage: 100 MG Q2WKS IV
     Route: 042
     Dates: start: 20031106
  2. NEURONTIN [Concomitant]
  3. PERCOCET [Concomitant]

REACTIONS (2)
  - PAIN [None]
  - SKIN DISORDER [None]
